FAERS Safety Report 19745912 (Version 1)
Quarter: 2021Q3

REPORT INFORMATION
  Report Type: Spontaneous
  Country: US (occurrence: US)
  Receive Date: 20210824
  Receipt Date: 20210824
  Transmission Date: 20211014
  Serious: Yes (Other)
  Sender: FDA-Public Use
  Company Number: None

PATIENT
  Age: 42 Year
  Sex: Female
  Weight: 101.43 kg

DRUGS (2)
  1. OZEMPIC [Suspect]
     Active Substance: SEMAGLUTIDE
     Indication: WEIGHT
     Dates: start: 20210815, end: 20210824
  2. OZEMPIC [Suspect]
     Active Substance: SEMAGLUTIDE
     Indication: INSULIN RESISTANCE
     Dates: start: 20210815, end: 20210824

REACTIONS (3)
  - Nausea [None]
  - Vomiting [None]
  - Dehydration [None]

NARRATIVE: CASE EVENT DATE: 20210824
